FAERS Safety Report 6464636-9 (Version None)
Quarter: 2009Q4

REPORT INFORMATION
  Report Type: 
  Country: None (occurrence: None)
  Receive Date: 20091124
  Receipt Date: 20091110
  Transmission Date: 20100525
  Serious: No
  Sender: FDA-Public Use
  Company Number: SPI200900380

PATIENT
  Age: 34 Year
  Sex: Female

DRUGS (2)
  1. AMITIZA [Suspect]
     Indication: CONSTIPATION
     Dosage: 24 MCG, BID, ORAL
     Route: 048
  2. SENOKOT (SENNA ALEXANDRINA FRUIT) [Concomitant]

REACTIONS (1)
  - DYSPNOEA [None]
